FAERS Safety Report 4938761-5 (Version None)
Quarter: 2006Q1

REPORT INFORMATION
  Report Type: 
  Country: None (occurrence: None)
  Receive Date: 20060306
  Receipt Date: 20060224
  Transmission Date: 20060701
  Serious: Yes (Other)
  Sender: FDA-Public Use
  Company Number: 2006028556

PATIENT
  Sex: Male

DRUGS (1)
  1. LYRICA [Suspect]
     Indication: MUSCLE SPASMS
     Dosage: UNKNOWN
     Route: 065

REACTIONS (1)
  - GASTROSTOMY TUBE INSERTION [None]
